FAERS Safety Report 10181171 (Version 1)
Quarter: 2014Q2

REPORT INFORMATION
  Report Type: Spontaneous
  Country: US (occurrence: US)
  Receive Date: 20140519
  Receipt Date: 20140519
  Transmission Date: 20141212
  Serious: No
  Sender: FDA-Public Use
  Company Number: US-AMGEN INC.-USASP2014028795

PATIENT
  Age: 77 Year
  Sex: Female

DRUGS (2)
  1. PROLIA [Suspect]
     Indication: OSTEOPOROSIS POSTMENOPAUSAL
     Dosage: UNK
     Route: 065
     Dates: start: 20140228
  2. FOLIC ACID [Concomitant]
     Dosage: UNK UNK, Q6MO
     Route: 065

REACTIONS (3)
  - Bone pain [Unknown]
  - Arthralgia [Unknown]
  - Myalgia [Unknown]
